FAERS Safety Report 25570512 (Version 1)
Quarter: 2025Q3

REPORT INFORMATION
  Report Type: Spontaneous
  Country: US (occurrence: US)
  Receive Date: 20250717
  Receipt Date: 20250717
  Transmission Date: 20251021
  Serious: No
  Sender: ALEXION PHARMACEUTICALS
  Company Number: US-AstraZeneca-CH-00911422A

PATIENT
  Sex: Female

DRUGS (2)
  1. TEZSPIRE [Suspect]
     Active Substance: TEZEPELUMAB-EKKO
     Route: 065
  2. TEZSPIRE [Suspect]
     Active Substance: TEZEPELUMAB-EKKO

REACTIONS (7)
  - Adverse reaction [Unknown]
  - Asthma [Unknown]
  - Multiple allergies [Unknown]
  - Rhinitis allergic [Unknown]
  - Eye pruritus [Unknown]
  - Urticaria [Unknown]
  - Chronic sinusitis [Unknown]
